FAERS Safety Report 9495772 (Version 1)
Quarter: 2013Q3

REPORT INFORMATION
  Report Type: Spontaneous
  Country: DE (occurrence: DE)
  Receive Date: 20130903
  Receipt Date: 20130903
  Transmission Date: 20140515
  Serious: Yes (Other)
  Sender: FDA-Public Use
  Company Number: DE-MYLANLABS-2013S1018774

PATIENT
  Age: 0 Year
  Sex: Male
  Weight: 3.51 kg

DRUGS (1)
  1. LAMOTRIGIN [Suspect]
     Dosage: 100 [MG/D ]
     Route: 063

REACTIONS (3)
  - Exposure during pregnancy [Recovered/Resolved]
  - Exposure during breast feeding [Recovered/Resolved]
  - Hepatic enzyme increased [Recovered/Resolved]
